FAERS Safety Report 10577420 (Version 1)
Quarter: 2014Q4

REPORT INFORMATION
  Report Type: Spontaneous
  Country: FR (occurrence: FR)
  Receive Date: 20141111
  Receipt Date: 20141111
  Transmission Date: 20150529
  Serious: Yes (Hospitalization)
  Sender: FDA-Public Use
  Company Number: FR-ASTRAZENECA-2014SE84907

PATIENT
  Age: 965 Month
  Sex: Male
  Weight: 76 kg

DRUGS (8)
  1. CRESTOR [Suspect]
     Active Substance: ROSUVASTATIN CALCIUM
     Indication: HYPERCHOLESTEROLAEMIA
     Route: 048
  2. AUGMENTIN [Concomitant]
     Active Substance: AMOXICILLIN\CLAVULANATE POTASSIUM
     Dosage: ABOUT EVERY TWO MONTHS
  3. ZITHROMAX [Concomitant]
     Active Substance: AZITHROMYCIN DIHYDRATE
     Dosage: THREE TIMES PER WEEK
  4. BRICANYL [Concomitant]
     Active Substance: TERBUTALINE SULFATE
     Dosage: THREE TIMES PER DAY
  5. XATRAL [Concomitant]
     Active Substance: ALFUZOSIN
     Dosage: FORMULATION: SR, 10MG UNKNOWN
  6. PULMICORT TURBUHALER [Concomitant]
     Active Substance: BUDESONIDE
  7. COLIMYCINE [Concomitant]
     Active Substance: COLISTIMETHATE SODIUM
     Dosage: 2 MUI TWO TIMES PER DAY
  8. INEXIUM [Concomitant]
     Active Substance: ESOMEPRAZOLE

REACTIONS (2)
  - Interstitial lung disease [Recovering/Resolving]
  - Blood creatine phosphokinase increased [Recovered/Resolved]

NARRATIVE: CASE EVENT DATE: 201407
